FAERS Safety Report 6863525-5 (Version None)
Quarter: 2010Q3

REPORT INFORMATION
  Report Type: 
  Country: None (occurrence: None)
  Receive Date: 20100721
  Receipt Date: 20100713
  Transmission Date: 20110219
  Serious: Yes (Hospitalization)
  Sender: FDA-Public Use
  Company Number: US-AMGEN-KDL420207

PATIENT
  Sex: Female
  Weight: 60.4 kg

DRUGS (39)
  1. ENBREL [Suspect]
     Indication: RHEUMATOID ARTHRITIS
     Route: 058
     Dates: start: 20070727
  2. PREDNISONE [Concomitant]
  3. ALBUTEROL SULATE [Concomitant]
     Route: 055
  4. IRON [Concomitant]
  5. PRILOSEC [Concomitant]
  6. VITAMIN D [Concomitant]
  7. PRAVASTAN [Concomitant]
  8. ALLEGRA [Concomitant]
  9. PRANDIN [Concomitant]
  10. DIOVAN [Concomitant]
  11. LYRICA [Concomitant]
  12. AGGRENOX [Concomitant]
  13. SOTALOL HCL [Concomitant]
  14. VESICARE [Concomitant]
  15. ZETIA [Concomitant]
  16. DITROPAN [Concomitant]
  17. EFFEXOR [Concomitant]
  18. LEVOTHYROXINE SODIUM [Concomitant]
  19. AMLODIPINE [Concomitant]
  20. FUROSEMIDE [Concomitant]
  21. XANAX [Concomitant]
  22. CENTRUM [Concomitant]
  23. ZOLEDRONIC ACID [Concomitant]
     Route: 042
  24. NITROGLYCERIN [Concomitant]
  25. ASPIRIN [Concomitant]
  26. ALPHAGAN [Concomitant]
  27. XALATAN [Concomitant]
  28. LORATADINE [Concomitant]
  29. NASACORT AQ [Concomitant]
  30. FOLIC ACID [Concomitant]
  31. ZYRTEC [Concomitant]
  32. LASIX [Concomitant]
  33. PRANDIN [Concomitant]
  34. TYLENOL [Concomitant]
  35. METHOTREXATE [Concomitant]
  36. CALCIUM WITH VITAMIN D [Concomitant]
  37. NITRO-SPRAY [Concomitant]
  38. TOPROL-XL [Concomitant]
  39. PULMICORT [Concomitant]

REACTIONS (17)
  - BACK PAIN [None]
  - BRONCHITIS [None]
  - CEREBROVASCULAR ACCIDENT [None]
  - COMPRESSION FRACTURE [None]
  - COUGH [None]
  - FALL [None]
  - HIP FRACTURE [None]
  - INJECTION SITE PAIN [None]
  - MEMORY IMPAIRMENT [None]
  - NAUSEA [None]
  - PAIN IN EXTREMITY [None]
  - PNEUMONIA [None]
  - RHEUMATOID ARTHRITIS [None]
  - UPPER LIMB FRACTURE [None]
  - VISUAL IMPAIRMENT [None]
  - VITAMIN D DECREASED [None]
  - VOMITING [None]
